FAERS Safety Report 24166003 (Version 1)
Quarter: 2024Q3

REPORT INFORMATION
  Report Type: Spontaneous
  Country: US (occurrence: US)
  Receive Date: 20240802
  Receipt Date: 20240802
  Transmission Date: 20241017
  Serious: No
  Sender: ACCORD
  Company Number: US-MYOVANT SCIENCES GMBH-2024MYSCI0400639

PATIENT
  Age: 70 Year
  Sex: Male

DRUGS (4)
  1. DOCETAXEL [Suspect]
     Active Substance: DOCETAXEL\DOCETAXEL ANHYDROUS
     Indication: Product used for unknown indication
     Route: 065
     Dates: start: 202402
  2. RELUGOLIX [Suspect]
     Active Substance: RELUGOLIX
     Indication: Prostate cancer
     Dosage: 360 MILLIGRAM, ONE TIME DOSE
     Route: 048
     Dates: start: 20240207, end: 20240207
  3. DAROLUTAMIDE [Concomitant]
     Active Substance: DAROLUTAMIDE
     Indication: Product used for unknown indication
     Route: 065
  4. RELUGOLIX [Suspect]
     Active Substance: RELUGOLIX
     Indication: Prostate cancer
     Dosage: 120 MILLIGRAM, QD
     Route: 048
     Dates: start: 20240208

REACTIONS (3)
  - Flushing [Recovered/Resolved]
  - Neutrophil count decreased [Unknown]
  - Infusion site pain [Recovered/Resolved]
